FAERS Safety Report 4358540-X (Version None)
Quarter: 2004Q2

REPORT INFORMATION
  Report Type: 
  Country: None (occurrence: None)
  Receive Date: 20040512
  Receipt Date: 20040429
  Transmission Date: 20050107
  Serious: Yes (Disabling)
  Sender: FDA-Public Use
  Company Number: 2004AP02435

PATIENT
  Age: 82 Year
  Sex: Male
  Weight: 71.8 kg

DRUGS (6)
  1. IRESSA [Suspect]
     Indication: NON-SMALL CELL LUNG CANCER
     Dosage: 250 MG DAILY PO
     Route: 048
     Dates: start: 20021204, end: 20030104
  2. SOMAC [Concomitant]
  3. OROXINE [Concomitant]
  4. PREDNISOLONE [Concomitant]
  5. FRAGMIN [Concomitant]
  6. MULTI-VITAMINS [Concomitant]

REACTIONS (1)
  - DEPRESSION [None]
